FAERS Safety Report 21167487 (Version 2)
Quarter: 2022Q3

REPORT INFORMATION
  Report Type: Spontaneous
  Country: US (occurrence: US)
  Receive Date: 20220803
  Receipt Date: 20220806
  Transmission Date: 20221027
  Serious: Yes (Other)
  Sender: FDA-Public Use
  Company Number: US-TEVA-2022-US-2060942

PATIENT
  Age: 64 Year
  Sex: Female

DRUGS (2)
  1. TORSEMIDE [Suspect]
     Active Substance: TORSEMIDE
     Indication: Blood sodium decreased
     Dosage: 10 MILLIGRAM DAILY;
     Route: 065
     Dates: start: 20220525, end: 20220610
  2. TORSEMIDE [Suspect]
     Active Substance: TORSEMIDE
     Indication: Inappropriate antidiuretic hormone secretion

REACTIONS (8)
  - Acute kidney injury [Unknown]
  - Renal impairment [Unknown]
  - Dehydration [Unknown]
  - Hypotension [Recovered/Resolved]
  - Drug ineffective [Unknown]
  - Muscular weakness [Unknown]
  - Dry mouth [Unknown]
  - Protein urine present [Unknown]

NARRATIVE: CASE EVENT DATE: 20220101
